FAERS Safety Report 6210360-7 (Version None)
Quarter: 2009Q2

REPORT INFORMATION
  Report Type: 
  Country: None (occurrence: None)
  Receive Date: 20090529
  Receipt Date: 20090529
  Transmission Date: 20091009
  Serious: Yes (Other)
  Sender: FDA-Public Use
  Company Number: None

PATIENT
  Age: 26 Year
  Sex: Female
  Weight: 74.8435 kg

DRUGS (1)
  1. KENALOG [Suspect]
     Indication: SINUSITIS
     Dosage: 80 MG ONCE ONE USE

REACTIONS (3)
  - INJECTION SITE DISCOLOURATION [None]
  - INJECTION SITE REACTION [None]
  - PAIN [None]
